FAERS Safety Report 18274967 (Version 3)
Quarter: 2024Q4

REPORT INFORMATION
  Report Type: Spontaneous
  Country: US (occurrence: US)
  Receive Date: 20200916
  Receipt Date: 20241125
  Transmission Date: 20250114
  Serious: No
  Sender: PFIZER
  Company Number: US-PFIZER INC-2020104163

PATIENT
  Age: 66 Year
  Sex: Female

DRUGS (4)
  1. XELJANZ [Suspect]
     Active Substance: TOFACITINIB CITRATE
     Indication: Rheumatoid arthritis
     Dosage: 5 MG
  2. XELJANZ [Suspect]
     Active Substance: TOFACITINIB CITRATE
     Indication: Lyme disease
     Dosage: 5 MG
  3. BIOTIN [Concomitant]
     Active Substance: BIOTIN
     Indication: Hair disorder
  4. BIOTIN [Concomitant]
     Active Substance: BIOTIN
     Indication: Nail disorder

REACTIONS (2)
  - Decreased immune responsiveness [Unknown]
  - Overweight [Unknown]
